FAERS Safety Report 6303395-7 (Version None)
Quarter: 2009Q3

REPORT INFORMATION
  Report Type: 
  Country: None (occurrence: None)
  Receive Date: 20090810
  Receipt Date: 20090731
  Transmission Date: 20100115
  Serious: Yes (Hospitalization, Congenital Anomaly, Other)
  Sender: FDA-Public Use
  Company Number: ES-ABBOTT-09P-144-0588525-00

PATIENT

DRUGS (1)
  1. HUMIRA [Suspect]
     Indication: DRUG EXPOSURE DURING PREGNANCY
     Route: 064

REACTIONS (4)
  - CONGENITAL TRICUSPID VALVE INCOMPETENCE [None]
  - MATERNAL DRUGS AFFECTING FOETUS [None]
  - PULMONARY VALVE STENOSIS CONGENITAL [None]
  - SMALL FOR DATES BABY [None]
